FAERS Safety Report 15603389 (Version 24)
Quarter: 2020Q2

REPORT INFORMATION
  Report Type: Report from Study
  Country: US (occurrence: US)
  Receive Date: 20181109
  Receipt Date: 20200630
  Transmission Date: 20200713
  Serious: Yes (Death, Hospitalization)
  Sender: FDA-Public Use
  Company Number: US-ACTELION-A-US2018-172367

PATIENT
  Age: 72 Year
  Sex: Female
  Weight: 47.17 kg

DRUGS (19)
  1. DICYCLOMINE [Concomitant]
     Active Substance: DICYCLOMINE HYDROCHLORIDE
     Dosage: 20 MG, PRN
  2. OMEGA [Concomitant]
     Dosage: UNK, QD
  3. PANTOPRAZOLE [Concomitant]
     Active Substance: PANTOPRAZOLE
     Dosage: 40 MG, QD
  4. OPSUMIT [Suspect]
     Active Substance: MACITENTAN
     Indication: PULMONARY HYPERTENSION
     Dosage: 10 MG, QD
     Route: 048
     Dates: start: 20180426, end: 20200102
  5. SPIRONOLACTONE. [Concomitant]
     Active Substance: SPIRONOLACTONE
     Dosage: 25 MG, BID
  6. OPSUMIT [Suspect]
     Active Substance: MACITENTAN
     Dosage: 10 MG, QD
     Route: 048
     Dates: start: 20180601
  7. BENAZEPRIL [Concomitant]
     Active Substance: BENAZEPRIL HYDROCHLORIDE
     Dosage: 30 MG, QD
  8. ADEMPAS [Suspect]
     Active Substance: RIOCIGUAT
     Dosage: 2.5 MG, TID
     Route: 048
  9. ALENDRONATE SODIUM. [Concomitant]
     Active Substance: ALENDRONATE SODIUM
     Dosage: 70 MG, ONCE A WEEK
  10. CENTRUM SILVER [Concomitant]
     Active Substance: MINERALS\VITAMINS
     Dosage: UNK, QD
  11. ADEMPAS [Suspect]
     Active Substance: RIOCIGUAT
     Indication: CARDIAC DISORDER
     Dosage: UNK
     Route: 065
     Dates: start: 20180509
  12. NIFEDIPINE. [Concomitant]
     Active Substance: NIFEDIPINE
     Dosage: 90 MG, QD
  13. VITAMIN C [Concomitant]
     Active Substance: ASCORBIC ACID
     Dosage: 2000 MG, QD
  14. ATENOLOL. [Concomitant]
     Active Substance: ATENOLOL
     Dosage: 100-25 MG, QD
  15. LEVOTHYROXINE. [Concomitant]
     Active Substance: LEVOTHYROXINE
     Dosage: 88 MCG, QD EXCEPT W; 100 MCG, ON W
  16. VITAMIN D2 [Concomitant]
     Active Substance: ERGOCALCIFEROL
     Dosage: 50000 U, ONCE A WEEK
  17. PRIMIDONE. [Concomitant]
     Active Substance: PRIMIDONE
     Dosage: 50 MG, UNK
  18. TRAMADOL. [Concomitant]
     Active Substance: TRAMADOL
     Dosage: 50 MG, PRN
  19. TYLENOL EXTRA STRENGTH [Concomitant]
     Active Substance: ACETAMINOPHEN
     Dosage: UNK, PRN

REACTIONS (30)
  - Haematemesis [Recovered/Resolved]
  - Oedema [Unknown]
  - Loss of consciousness [Fatal]
  - Hospitalisation [Unknown]
  - Anaemia [Unknown]
  - Colitis [Recovered/Resolved]
  - Constipation [Unknown]
  - Pleural effusion [Unknown]
  - Gastrointestinal pain [Recovered/Resolved]
  - Cardiac arrest [Fatal]
  - Pulmonary arterial hypertension [Recovered/Resolved]
  - Transfusion [Unknown]
  - Pulmonary oedema [Unknown]
  - Packed red blood cell transfusion [Recovered/Resolved]
  - Scleroderma [Unknown]
  - Fluid retention [Unknown]
  - Atrial fibrillation [Unknown]
  - Blood creatinine increased [Recovered/Resolved]
  - Clostridium difficile infection [Recovered/Resolved]
  - Infection [Unknown]
  - Dyspnoea [Unknown]
  - Vomiting [Unknown]
  - Pain in extremity [Unknown]
  - Anaemia macrocytic [Recovered/Resolved]
  - Prerenal failure [Unknown]
  - Fluid overload [Recovered/Resolved]
  - Transfusion reaction [Unknown]
  - Brain natriuretic peptide increased [Recovered/Resolved]
  - Abdominal pain upper [Unknown]
  - Gastrointestinal haemorrhage [Recovered/Resolved]

NARRATIVE: CASE EVENT DATE: 20180509
